FAERS Safety Report 7633098-8 (Version None)
Quarter: 2011Q3

REPORT INFORMATION
  Report Type: 
  Country: None (occurrence: None)
  Receive Date: 20110725
  Receipt Date: 20110713
  Transmission Date: 20111222
  Serious: Yes (Hospitalization)
  Sender: FDA-Public Use
  Company Number: JP-ROCHE-708885

PATIENT
  Sex: Female
  Weight: 60 kg

DRUGS (29)
  1. TOCILIZUMAB [Suspect]
     Route: 042
     Dates: start: 20100308, end: 20100308
  2. TOCILIZUMAB [Suspect]
     Route: 042
     Dates: start: 20100510, end: 20100510
  3. PREDNISOLONE [Suspect]
     Route: 048
     Dates: start: 20090702, end: 20090728
  4. TOCILIZUMAB [Suspect]
     Indication: RHEUMATOID ARTHRITIS
     Route: 042
     Dates: start: 20090212, end: 20090212
  5. TOCILIZUMAB [Suspect]
     Route: 042
     Dates: start: 20091217, end: 20091217
  6. METHOTREXATE [Suspect]
     Indication: RHEUMATOID ARTHRITIS
     Route: 048
     Dates: start: 20080811, end: 20100510
  7. PREDNISOLONE [Suspect]
     Route: 048
     Dates: start: 20090226, end: 20090312
  8. TOCILIZUMAB [Suspect]
     Route: 042
     Dates: start: 20090409, end: 20090409
  9. TOCILIZUMAB [Suspect]
     Route: 042
     Dates: start: 20090702, end: 20090702
  10. ETODOLAC [Concomitant]
     Route: 048
  11. TOCILIZUMAB [Suspect]
     Route: 042
     Dates: start: 20091022, end: 20091022
  12. TOCILIZUMAB [Suspect]
     Route: 042
     Dates: start: 20091119, end: 20091119
  13. ISONIAZID [Suspect]
     Indication: RHEUMATOID ARTHRITIS
     Dosage: FORM: PERORAL AGENT
     Route: 048
  14. PREDNISOLONE [Suspect]
     Dosage: DOSE FORM PERORAL AGENT
     Route: 048
     Dates: start: 20090313, end: 20090603
  15. PREDNISOLONE [Suspect]
     Dosage: PERORAL AGENT
     Route: 048
     Dates: start: 20090729
  16. TOCILIZUMAB [Suspect]
     Route: 042
     Dates: start: 20090729, end: 20090729
  17. TOCILIZUMAB [Suspect]
     Route: 042
     Dates: start: 20090924, end: 20090924
  18. PREDNISOLONE [Suspect]
     Route: 048
     Dates: start: 20100308
  19. SOLETON [Concomitant]
     Route: 048
     Dates: start: 20090827, end: 20100610
  20. TOCILIZUMAB [Suspect]
     Route: 042
     Dates: start: 20090312, end: 20090312
  21. TOCILIZUMAB [Suspect]
     Route: 042
     Dates: start: 20100114, end: 20100114
  22. TOCILIZUMAB [Suspect]
     Route: 042
     Dates: start: 20100208, end: 20100208
  23. PREDNISOLONE [Suspect]
     Indication: RHEUMATOID ARTHRITIS
     Dosage: DOSE FORM: PERORAL AGENT
     Route: 048
     Dates: end: 20090225
  24. PREDNISOLONE [Suspect]
     Dosage: DOSE FORM PERORAL AGENT
     Route: 048
     Dates: start: 20090604, end: 20090701
  25. TOCILIZUMAB [Suspect]
     Route: 042
     Dates: start: 20090507, end: 20090507
  26. TOCILIZUMAB [Suspect]
     Route: 042
     Dates: start: 20090604, end: 20090604
  27. TOCILIZUMAB [Suspect]
     Route: 042
     Dates: start: 20090827, end: 20090827
  28. TOCILIZUMAB [Suspect]
     Route: 042
     Dates: start: 20100405, end: 20100405
  29. FOLIC ACID [Concomitant]
     Dosage: PERORAL AGENT
     Route: 048

REACTIONS (2)
  - HEPATITIS ACUTE [None]
  - HEPATIC FUNCTION ABNORMAL [None]
